FAERS Safety Report 8715838 (Version 2)
Quarter: 2013Q1

REPORT INFORMATION
  Report Type: Spontaneous
  Country: GB (occurrence: None)
  Receive Date: 20120725
  Receipt Date: 20121231
  Transmission Date: 20140127
  Serious: Yes (Hospitalization, Other)
  Sender: FDA-Public Use
  Company Number: DSA_58597_2012

PATIENT
  Age: 69 Year
  Sex: Female
  Weight: 64 kg

DRUGS (13)
  1. TETRABENAZINE [Suspect]
     Indication: PRODUCT USED FOR UNKNOWN INDICATION
     Dosage: 4.5 MG, QD
     Route: 048
     Dates: start: 20111128, end: 20120320
  2. LORAZEPAM [Suspect]
     Indication: PRODUCT USED FOR UNKNOWN INDICATION
     Dosage: 1 MG, TID, DOSE HALVED
     Route: 048
     Dates: start: 20120329, end: 20120523
  3. METOCLOPRAMIDE HYDROCHLORIDE [Suspect]
     Indication: PRODUCT USED FOR UNKNOWN INDICATION
     Dosage: DF
     Route: 048
     Dates: start: 20080806, end: 201109
  4. MIRTAZAPINE (MIRTAZAPINE) [Suspect]
     Indication: PRODUCT USED FOR UNKNOWN INDICATION
     Dosage: 30 MG, FREQUENCY UNSPECIFIEID, 15 MG, QD
     Dates: start: 20120501
  5. PROPRANOLOL [Suspect]
     Indication: PRODUCT USED FOR UNKNOWN INDICATION
     Dosage: 10 MG 6X/DAY ORAL
     Dates: start: 20120501
  6. SEROXAT [Suspect]
     Indication: DEPRESSION
     Dosage: 20 MG QD, ORAL, 20 MG, BID, ORAL (1 TABLET DOSAGE UNKNOWN, (HALF A TABLET) (DOSE AND FREQUENCY UNSPE
     Route: 048
     Dates: start: 20111013, end: 20111206
  7. ACRIVASTINE [Concomitant]
  8. ATORVASTATIN CALCIUM [Concomitant]
  9. BECONASE AQ [Concomitant]
  10. BENDROFLUAZIDE [Concomitant]
  11. FENOFIBRATE [Concomitant]
  12. LANSOPRAZOLE [Concomitant]
  13. RAMIPRIL [Concomitant]

REACTIONS (11)
  - Akathisia [None]
  - Adverse drug reaction [None]
  - Hallucination [None]
  - Dyskinesia [None]
  - Fall [None]
  - Drug effect decreased [None]
  - General physical health deterioration [None]
  - Joint contracture [None]
  - Hypophagia [None]
  - Drug administration error [None]
  - Eating disorder [None]
